FAERS Safety Report 21890350 (Version 2)
Quarter: 2023Q1

REPORT INFORMATION
  Report Type: Spontaneous
  Country: CN (occurrence: CN)
  Receive Date: 20230120
  Receipt Date: 20230317
  Transmission Date: 20230417
  Serious: Yes (Death, Other)
  Sender: FDA-Public Use
  Company Number: CN-PFIZER INC-PV202300010520

PATIENT
  Age: 48 Year
  Sex: Male

DRUGS (5)
  1. TYGACIL [Suspect]
     Active Substance: TIGECYCLINE
     Indication: Anti-infective therapy
     Dosage: 50 MG, 2X/DAY
     Route: 041
     Dates: start: 20230101, end: 20230111
  2. TYGACIL [Suspect]
     Active Substance: TIGECYCLINE
     Indication: Sepsis
  3. MEROPENEM [Concomitant]
     Active Substance: MEROPENEM
     Indication: Anti-infective therapy
     Dosage: 1 G, 3X/DAY
     Route: 041
     Dates: start: 20221215, end: 20221220
  4. MEROPENEM [Concomitant]
     Active Substance: MEROPENEM
     Indication: Sepsis
     Dosage: 2 G, 3X/DAY
     Route: 041
     Dates: start: 20221220, end: 20230106
  5. MEROPENEM [Concomitant]
     Active Substance: MEROPENEM
     Dosage: 1 G, 3X/DAY
     Route: 042
     Dates: start: 20230106, end: 20230111

REACTIONS (10)
  - Hypertension [Fatal]
  - Pneumonia [Fatal]
  - Septic shock [Fatal]
  - Salmonellosis [Fatal]
  - Hepatic failure [Fatal]
  - Acute kidney injury [Fatal]
  - Gouty arthritis [Fatal]
  - Prothrombin time prolonged [Not Recovered/Not Resolved]
  - Blood fibrinogen decreased [Not Recovered/Not Resolved]
  - Activated partial thromboplastin time prolonged [Not Recovered/Not Resolved]

NARRATIVE: CASE EVENT DATE: 20230104
